FAERS Safety Report 8993389 (Version 1)
Quarter: 2013Q1

REPORT INFORMATION
  Report Type: Spontaneous
  Country: US (occurrence: US)
  Receive Date: 20130102
  Receipt Date: 20130102
  Transmission Date: 20140127
  Serious: Yes (Other)
  Sender: FDA-Public Use
  Company Number: CHPA2012US025754

PATIENT
  Age: 82 Year
  Sex: Female

DRUGS (3)
  1. EXCEDRIN EXTRA STRENGTH [Suspect]
     Indication: MIGRAINE
     Dosage: 1 UNK, PRN
     Route: 048
  2. EXCEDRIN MIGRAINE [Suspect]
     Indication: NEUROPATHY PERIPHERAL
     Dosage: 1/2 TO 1 DF, UNK
     Route: 048
  3. LORAZEPAM [Concomitant]
     Indication: DEATH OF RELATIVE
     Dosage: UNK, UNK
     Route: 048
     Dates: start: 2006

REACTIONS (7)
  - Transient ischaemic attack [Recovered/Resolved]
  - Macular degeneration [Not Recovered/Not Resolved]
  - Neuropathy peripheral [Not Recovered/Not Resolved]
  - Depression [Not Recovered/Not Resolved]
  - Sleep disorder [Not Recovered/Not Resolved]
  - Lacrimation increased [Not Recovered/Not Resolved]
  - Underdose [Unknown]
